FAERS Safety Report 13542132 (Version 1)
Quarter: 2017Q2

REPORT INFORMATION
  Report Type: Spontaneous
  Country: US (occurrence: US)
  Receive Date: 20170512
  Receipt Date: 20170512
  Transmission Date: 20170830
  Serious: No
  Sender: FDA-Public Use
  Company Number: US-BIOGEN-2017BI00398195

PATIENT
  Sex: Female

DRUGS (2)
  1. AVONEX [Suspect]
     Active Substance: INTERFERON BETA-1A
     Route: 065
     Dates: end: 20150820
  2. AVONEX [Suspect]
     Active Substance: INTERFERON BETA-1A
     Indication: MULTIPLE SCLEROSIS
     Route: 065
     Dates: start: 20130301, end: 20150628

REACTIONS (10)
  - Memory impairment [Unknown]
  - Ovarian disorder [Unknown]
  - Asthenia [Unknown]
  - Stress [Not Recovered/Not Resolved]
  - Fatigue [Unknown]
  - Uterine cervical pain [Unknown]
  - Hand fracture [Not Recovered/Not Resolved]
  - Hyperhidrosis [Not Recovered/Not Resolved]
  - Multiple sclerosis [Recovered/Resolved]
  - Somnolence [Unknown]
